FAERS Safety Report 26005508 (Version 1)
Quarter: 2025Q4

REPORT INFORMATION
  Report Type: Spontaneous
  Country: BR (occurrence: BR)
  Receive Date: 20251106
  Receipt Date: 20251106
  Transmission Date: 20260118
  Serious: Yes (Other)
  Sender: TAKEDA
  Company Number: BR-TAKEDA-2025TUS097478

PATIENT
  Age: 28 Year
  Sex: Male
  Weight: 78 kg

DRUGS (1)
  1. ENTYVIO [Suspect]
     Active Substance: VEDOLIZUMAB
     Indication: Colitis ulcerative
     Dosage: 300 MILLIGRAM, 2/MONTH
     Dates: start: 202409

REACTIONS (3)
  - Testis cancer [Unknown]
  - Metastases to peritoneum [Unknown]
  - Illness [Unknown]

NARRATIVE: CASE EVENT DATE: 20250317
